FAERS Safety Report 11129664 (Version 2)
Quarter: 2015Q2

REPORT INFORMATION
  Report Type: Spontaneous
  Country: US (occurrence: US)
  Receive Date: 20150521
  Receipt Date: 20150529
  Transmission Date: 20150821
  Serious: Yes (Other)
  Sender: FDA-Public Use
  Company Number: US-JNJFOC-20140925721

PATIENT
  Age: 57 Year
  Sex: Female

DRUGS (6)
  1. IMBRUVICA [Suspect]
     Active Substance: IBRUTINIB
     Indication: CHRONIC LYMPHOCYTIC LEUKAEMIA
     Route: 048
     Dates: start: 20140815, end: 20140818
  2. IMBRUVICA [Suspect]
     Active Substance: IBRUTINIB
     Indication: CHRONIC LYMPHOCYTIC LEUKAEMIA
     Route: 048
     Dates: start: 2014, end: 2015
  3. CALCIUM + D3 [Concomitant]
     Active Substance: CALCIUM\CHOLECALCIFEROL
  4. FOSAMAX PLUS D [Concomitant]
     Active Substance: ALENDRONATE SODIUM\CHOLECALCIFEROL
  5. CENTRUM CARDIO [Concomitant]
     Active Substance: VITAMINS
  6. ACYCLOVIR. [Concomitant]
     Active Substance: ACYCLOVIR

REACTIONS (2)
  - Gastrointestinal haemorrhage [Unknown]
  - Melaena [Recovered/Resolved]

NARRATIVE: CASE EVENT DATE: 20140818
